FAERS Safety Report 9251953 (Version 1)
Quarter: 2013Q2

REPORT INFORMATION
  Report Type: Spontaneous
  Country: CH (occurrence: CH)
  Receive Date: 20130424
  Receipt Date: 20130424
  Transmission Date: 20140414
  Serious: Yes (Hospitalization, Other)
  Sender: FDA-Public Use
  Company Number: CH-PFIZER INC-2013091641

PATIENT
  Age: 63 Year
  Sex: Female
  Weight: 65 kg

DRUGS (3)
  1. PANTOZOL [Suspect]
     Indication: GASTROOESOPHAGEAL REFLUX DISEASE
     Dosage: 40 MG, 1X/DAY
     Route: 065
     Dates: start: 2012
  2. PANTOZOL [Suspect]
     Dosage: 40 MG, AS NEEDED (ON DEMAND EVERY 2 OR 3 DAY)
     Route: 065
     Dates: start: 2012
  3. PANTOZOL [Suspect]
     Dosage: 40 MG, 1X/DAY
     Route: 048
     Dates: start: 20130410, end: 20130412

REACTIONS (9)
  - Extrasystoles [Unknown]
  - Cardiac disorder [Recovered/Resolved]
  - Dysphagia [Recovered/Resolved]
  - Pharyngeal oedema [Recovered/Resolved]
  - Dyspnoea [Recovered/Resolved]
  - Hunger [Unknown]
  - Dizziness [Unknown]
  - Headache [Unknown]
  - Weight increased [Unknown]
